FAERS Safety Report 9419157 (Version 2)
Quarter: 2013Q3

REPORT INFORMATION
  Report Type: Spontaneous
  Country: CY (occurrence: CY)
  Receive Date: 20130725
  Receipt Date: 20130909
  Transmission Date: 20140515
  Serious: Yes (Other)
  Sender: FDA-Public Use
  Company Number: CY-ELI_LILLY_AND_COMPANY-CY201307005415

PATIENT
  Age: 20 Year
  Sex: Female

DRUGS (3)
  1. CYMBALTA [Suspect]
     Indication: MAJOR DEPRESSION
     Dosage: 30 MG, EACH EVENING
     Route: 065
     Dates: start: 20121027, end: 20121030
  2. CYMBALTA [Suspect]
     Dosage: 60 MG, QD
     Route: 065
     Dates: start: 20121031
  3. CYMBALTA [Suspect]
     Dosage: UNK, UNKNOWN
     Route: 065
     Dates: start: 201307

REACTIONS (3)
  - Alanine aminotransferase increased [Recovered/Resolved]
  - Aspartate aminotransferase increased [Recovered/Resolved]
  - Asthenia [Recovered/Resolved]
